FAERS Safety Report 18532887 (Version 2)
Quarter: 2020Q4

REPORT INFORMATION
  Report Type: Report from Study
  Country: None (occurrence: US)
  Receive Date: 20201123
  Receipt Date: 20201230
  Transmission Date: 20210114
  Serious: Yes (Hospitalization)
  Sender: FDA-Public Use
  Company Number: US-BIOVITRUM-2020US4290

PATIENT
  Age: 39 Year
  Sex: Male

DRUGS (1)
  1. KINERET [Suspect]
     Active Substance: ANAKINRA
     Indication: GOUTY TOPHUS
     Route: 058
     Dates: start: 20200416

REACTIONS (10)
  - Fall [Unknown]
  - Arthralgia [Unknown]
  - Blood uric acid increased [Unknown]
  - Bronchitis [Unknown]
  - Off label use [Unknown]
  - Tremor [Unknown]
  - Joint swelling [Unknown]
  - Product dose omission issue [Unknown]
  - Upper limb fracture [Unknown]
  - Contusion [Unknown]

NARRATIVE: CASE EVENT DATE: 20200416
